FAERS Safety Report 9107187 (Version 3)
Quarter: 2013Q2

REPORT INFORMATION
  Report Type: Spontaneous
  Country: CA (occurrence: CA)
  Receive Date: 20130221
  Receipt Date: 20130503
  Transmission Date: 20140414
  Serious: Yes (Other)
  Sender: FDA-Public Use
  Company Number: PHHY2013CA016084

PATIENT
  Age: 80 Year
  Sex: Male

DRUGS (4)
  1. BICALUTAMIDE [Suspect]
     Indication: PROSTATIC SPECIFIC ANTIGEN
     Dosage: 50 MG, PER DAY
     Route: 048
     Dates: start: 20130204, end: 20130205
  2. ANALGESICS [Concomitant]
  3. ANTIDEPRESSANTS [Concomitant]
  4. DRUG FOR STOMACH [Concomitant]

REACTIONS (7)
  - Headache [Not Recovered/Not Resolved]
  - Back pain [Not Recovered/Not Resolved]
  - Feeling abnormal [Not Recovered/Not Resolved]
  - Chest pain [Not Recovered/Not Resolved]
  - Abdominal pain upper [Not Recovered/Not Resolved]
  - Somnolence [Not Recovered/Not Resolved]
  - Dizziness [Not Recovered/Not Resolved]
